FAERS Safety Report 9429988 (Version 1)
Quarter: 2013Q3

REPORT INFORMATION
  Report Type: Report from Study
  Country: US (occurrence: US)
  Receive Date: 20130730
  Receipt Date: 20130730
  Transmission Date: 20140515
  Serious: No
  Sender: FDA-Public Use
  Company Number: US-ABBOTT-13P-163-1048981-00

PATIENT
  Age: 46 Year
  Sex: Male

DRUGS (4)
  1. NIASPAN (COATED) [Suspect]
     Indication: PRODUCT USED FOR UNKNOWN INDICATION
     Dosage: AT BEDTIME
     Dates: start: 20130204
  2. CRESTOR [Concomitant]
     Indication: PRODUCT USED FOR UNKNOWN INDICATION
     Route: 048
  3. ASPIRIN [Concomitant]
     Indication: PRODUCT USED FOR UNKNOWN INDICATION
     Dosage: 30 MINUTES PRIOR TO DOSE OF NIASPAN
     Route: 048
  4. UNKNOWN MEDICATION(S) [Concomitant]
     Indication: PRODUCT USED FOR UNKNOWN INDICATION

REACTIONS (2)
  - Flushing [Recovered/Resolved]
  - Feeling hot [Recovered/Resolved]
